FAERS Safety Report 6657518-0 (Version None)
Quarter: 2010Q1

REPORT INFORMATION
  Report Type: 
  Country: None (occurrence: None)
  Receive Date: 20100330
  Receipt Date: 20100322
  Transmission Date: 20100710
  Serious: Yes (Other)
  Sender: FDA-Public Use
  Company Number: US-MYLANLABS-2010S1003221

PATIENT
  Age: 17 Year
  Sex: Female
  Weight: 68.04 kg

DRUGS (1)
  1. AMNESTEEM [Suspect]
     Indication: ACNE
     Route: 048
     Dates: start: 20100122, end: 20100225

REACTIONS (3)
  - MOOD ALTERED [None]
  - MUSCLE SPASMS [None]
  - SUICIDAL IDEATION [None]
